FAERS Safety Report 5192068-2 (Version None)
Quarter: 2006Q4

REPORT INFORMATION
  Report Type: 
  Country: None (occurrence: None)
  Receive Date: 20061220
  Receipt Date: 20061207
  Transmission Date: 20070319
  Serious: Yes (Hospitalization)
  Sender: FDA-Public Use
  Company Number: 2006SP006002

PATIENT
  Age: 2 Year
  Sex: Male
  Weight: 13 kg

DRUGS (1)
  1. CELESTENE (BETAMETHASONE) (BETAMETHASONE) [Suspect]
     Indication: BRONCHITIS ACUTE
     Dosage: 400 GTT; PO
     Route: 048
     Dates: start: 20061109, end: 20061109

REACTIONS (1)
  - VASCULAR PURPURA [None]
